FAERS Safety Report 21760397 (Version 1)
Quarter: 2022Q4

REPORT INFORMATION
  Report Type: Spontaneous
  Country: US (occurrence: None)
  Receive Date: 20221220
  Receipt Date: 20221220
  Transmission Date: 20230113
  Serious: Yes (Life-Threatening, Hospitalization, Other)
  Sender: FDA-Public Use
  Company Number: None

PATIENT
  Age: 85 Year
  Sex: Female
  Weight: 56.7 kg

DRUGS (2)
  1. ISOVUE 370 [Suspect]
     Active Substance: IOPAMIDOL
     Indication: Haematuria
     Route: 042
     Dates: start: 20221213, end: 20221213
  2. ISOVUE 370 [Suspect]
     Active Substance: IOPAMIDOL
     Indication: Urinary tract infection

REACTIONS (5)
  - Hypersensitivity [None]
  - Cough [None]
  - Throat irritation [None]
  - Speech disorder [None]
  - Dyspnoea [None]

NARRATIVE: CASE EVENT DATE: 20221213
